FAERS Safety Report 5188076-8 (Version None)
Quarter: 2006Q4

REPORT INFORMATION
  Report Type: 
  Country: None (occurrence: None)
  Receive Date: 20061214
  Receipt Date: 20061129
  Transmission Date: 20070319
  Serious: Yes (Hospitalization, Other)
  Sender: FDA-Public Use
  Company Number: 2006-317

PATIENT
  Age: 75 Year
  Sex: Female
  Weight: 65 kg

DRUGS (5)
  1. CIPROFLOXACIN [Suspect]
     Indication: URINARY TRACT INFECTION
     Dosage: 500 MG (2/DAY)
     Dates: start: 20060808, end: 20060813
  2. BECLOMETHASONE DIPROPIONATE [Concomitant]
  3. DIPROPIONATE [Concomitant]
  4. QUININE SULFATE [Concomitant]
  5. VENTOLIN [Concomitant]

REACTIONS (2)
  - TENDON RUPTURE [None]
  - TENDONITIS [None]
